FAERS Safety Report 6848756-2 (Version None)
Quarter: 2010Q3

REPORT INFORMATION
  Report Type: 
  Country: None (occurrence: None)
  Receive Date: 20100716
  Receipt Date: 20070908
  Transmission Date: 20110219
  Serious: No
  Sender: FDA-Public Use
  Company Number: US-PFIZER INC-2007075643

PATIENT
  Sex: Female
  Weight: 74.8 kg

DRUGS (4)
  1. CHANTIX [Suspect]
     Indication: SMOKING CESSATION THERAPY
     Dates: start: 20070801
  2. CYCLOBENZAPRINE [Interacting]
     Indication: TEMPOROMANDIBULAR JOINT SYNDROME
     Dates: start: 20070101
  3. STAHIST [Concomitant]
     Indication: HYPERSENSITIVITY
  4. LISINOPRIL [Concomitant]

REACTIONS (6)
  - BRUXISM [None]
  - CONSTIPATION [None]
  - DRUG INTERACTION [None]
  - STRESS [None]
  - TEMPOROMANDIBULAR JOINT SYNDROME [None]
  - WEIGHT INCREASED [None]
